FAERS Safety Report 6795554-4 (Version None)
Quarter: 2010Q2

REPORT INFORMATION
  Report Type: 
  Country: None (occurrence: None)
  Receive Date: 20100622
  Receipt Date: 20080929
  Transmission Date: 20101027
  Serious: Yes (Death, Hospitalization)
  Sender: FDA-Public Use
  Company Number: LEO-2010-00516

PATIENT
  Sex: Male
  Weight: 1.128 kg

DRUGS (3)
  1. INNOHEP [Suspect]
     Indication: DRUG EXPOSURE DURING PREGNANCY
     Dosage: TRANSPLACENTAL
     Route: 064
     Dates: start: 20050731, end: 20050804
  2. PONDOCILLIN (PIVAMPICILLIN HYDROCHLORIDE) [Concomitant]
  3. METRONIDAZOLE [Concomitant]

REACTIONS (4)
  - DEATH NEONATAL [None]
  - IMMATURE RESPIRATORY SYSTEM [None]
  - MATERNAL DRUGS AFFECTING FOETUS [None]
  - PREMATURE BABY [None]
